FAERS Safety Report 5820338-0 (Version None)
Quarter: 2008Q3

REPORT INFORMATION
  Report Type: 
  Country: None (occurrence: None)
  Receive Date: 20080724
  Receipt Date: 20070608
  Transmission Date: 20090109
  Serious: No
  Sender: FDA-Public Use
  Company Number: A0654869A

PATIENT
  Age: 76 Year
  Sex: Male

DRUGS (13)
  1. AVANDIA [Suspect]
     Dosage: 4MG TWICE PER DAY
     Route: 048
     Dates: start: 20050101, end: 20070501
  2. TOPROL-XL [Concomitant]
  3. GLIBURIDE [Concomitant]
  4. PLAVIX [Concomitant]
  5. RANITIDINE HCL [Concomitant]
  6. FINASTERIDE [Concomitant]
  7. ROSIGLITAZONE [Concomitant]
  8. TAMSULOSIN HCL [Concomitant]
  9. LISINOPRIL [Concomitant]
  10. SIMVASTATIN [Concomitant]
  11. METFORMIN [Concomitant]
  12. COMBIVENT [Concomitant]
  13. FUROSEMIDE [Concomitant]

REACTIONS (2)
  - CHEST DISCOMFORT [None]
  - CHEST PAIN [None]
